FAERS Safety Report 21878230 (Version 2)
Quarter: 2023Q1

REPORT INFORMATION
  Report Type: Spontaneous
  Country: US (occurrence: US)
  Receive Date: 20230118
  Receipt Date: 20230201
  Transmission Date: 20230417
  Serious: Yes (Hospitalization, Disabling, Other)
  Sender: FDA-Public Use
  Company Number: US-GILEAD-2023-0612603

PATIENT
  Age: 40 Year
  Sex: Female
  Weight: 139 kg

DRUGS (5)
  1. EPCLUSA [Suspect]
     Active Substance: SOFOSBUVIR\VELPATASVIR
     Indication: Hepatitis C
     Dosage: 400/100 MG
     Route: 048
     Dates: start: 20221222, end: 20230106
  2. AMMONUL [Concomitant]
     Active Substance: SODIUM BENZOATE\SODIUM PHENYLACETATE
     Dosage: 120 G
     Route: 048
  3. LYRICA [Concomitant]
     Active Substance: PREGABALIN
     Route: 048
  4. ROPINIROLE [Concomitant]
     Active Substance: ROPINIROLE
     Route: 048
  5. SUBOXONE [Concomitant]
     Active Substance: BUPRENORPHINE HYDROCHLORIDE\NALOXONE HYDROCHLORIDE
     Dosage: 8 G
     Route: 060

REACTIONS (1)
  - Angioedema [Recovered/Resolved]

NARRATIVE: CASE EVENT DATE: 20230106
